FAERS Safety Report 6214992-1 (Version None)
Quarter: 2009Q2

REPORT INFORMATION
  Report Type: 
  Country: None (occurrence: None)
  Receive Date: 20090604
  Receipt Date: 20080515
  Transmission Date: 20091009
  Serious: No
  Sender: FDA-Public Use
  Company Number: US-ASTRAZENECA-2008UW10095

PATIENT

DRUGS (2)
  1. PRILOSEC [Suspect]
     Indication: ULCER
     Route: 048
  2. PREDNISONE [Concomitant]

REACTIONS (1)
  - HYPOACUSIS [None]
